FAERS Safety Report 22366229 (Version 1)
Quarter: 2023Q2

REPORT INFORMATION
  Report Type: Spontaneous
  Country: JP (occurrence: JP)
  Receive Date: 20230525
  Receipt Date: 20230525
  Transmission Date: 20230722
  Serious: Yes (Hospitalization, Other)
  Sender: FDA-Public Use
  Company Number: None

PATIENT
  Age: 9 Decade
  Sex: Male

DRUGS (1)
  1. PREDNISOLONE [Suspect]
     Active Substance: PREDNISOLONE
     Indication: Thrombocytopenic purpura
     Dosage: 5 MILLIGRAM, QD
     Route: 065

REACTIONS (4)
  - Renal impairment [Unknown]
  - Fungaemia [Unknown]
  - Fungal skin infection [Recovered/Resolved]
  - Pseudallescheria infection [Recovered/Resolved]
